FAERS Safety Report 17126849 (Version 2)
Quarter: 2021Q1

REPORT INFORMATION
  Report Type: Report from Study
  Country: US (occurrence: US)
  Receive Date: 20191209
  Receipt Date: 20210301
  Transmission Date: 20210419
  Serious: No
  Sender: FDA-Public Use
  Company Number: US-SHIRE-US201942364

PATIENT
  Sex: Female

DRUGS (8)
  1. TEDUGLUTIDE [Suspect]
     Active Substance: TEDUGLUTIDE
     Indication: PRODUCT USED FOR UNKNOWN INDICATION
     Dosage: 0.2880 UNKNOWN UNIT
     Route: 058
     Dates: start: 20190805
  2. TEDUGLUTIDE [Suspect]
     Active Substance: TEDUGLUTIDE
     Dosage: 0.3000 UNKNOWN UNIT
     Route: 058
     Dates: start: 20190805
  3. TEDUGLUTIDE [Suspect]
     Active Substance: TEDUGLUTIDE
     Indication: PRODUCT USED FOR UNKNOWN INDICATION
     Dosage: 0.2880 UNKNOWN UNIT
     Route: 058
     Dates: start: 20190805
  4. TEDUGLUTIDE [Suspect]
     Active Substance: TEDUGLUTIDE
     Dosage: 0.3000 UNKNOWN UNIT
     Route: 058
     Dates: start: 20190805
  5. TEDUGLUTIDE [Suspect]
     Active Substance: TEDUGLUTIDE
     Dosage: 0.3000 UNKNOWN UNIT
     Route: 058
     Dates: start: 20190805
  6. TEDUGLUTIDE [Suspect]
     Active Substance: TEDUGLUTIDE
     Indication: PRODUCT USED FOR UNKNOWN INDICATION
     Dosage: 0.2880 UNKNOWN UNIT
     Route: 058
     Dates: start: 20190805
  7. TEDUGLUTIDE [Suspect]
     Active Substance: TEDUGLUTIDE
     Indication: PRODUCT USED FOR UNKNOWN INDICATION
     Dosage: 0.2880 UNKNOWN UNIT
     Route: 058
     Dates: start: 20190805
  8. TEDUGLUTIDE [Suspect]
     Active Substance: TEDUGLUTIDE
     Dosage: 0.3000 UNKNOWN UNIT
     Route: 058
     Dates: start: 20190805

REACTIONS (3)
  - Injection site erythema [Not Recovered/Not Resolved]
  - Injection site mass [Not Recovered/Not Resolved]
  - Inappropriate schedule of product administration [Not Recovered/Not Resolved]
